FAERS Safety Report 20871916 (Version 1)
Quarter: 2022Q2

REPORT INFORMATION
  Report Type: Spontaneous
  Country: US (occurrence: None)
  Receive Date: 20220524
  Receipt Date: 20220524
  Transmission Date: 20220721
  Serious: Yes (Other)
  Sender: FDA-Public Use
  Company Number: None

PATIENT
  Age: 45 Year
  Sex: Male
  Weight: 96.3 kg

DRUGS (1)
  1. INFLECTRA [Suspect]
     Active Substance: INFLIXIMAB-DYYB
     Indication: Hidradenitis
     Dosage: OTHER FREQUENCY : WK 0,2,6, THEN Q 8;?
     Route: 041
     Dates: start: 20220427, end: 20220524

REACTIONS (5)
  - Infusion related reaction [None]
  - Dyspnoea [None]
  - Abdominal rigidity [None]
  - Throat tightness [None]
  - Flushing [None]

NARRATIVE: CASE EVENT DATE: 20220524
